FAERS Safety Report 10419413 (Version 1)
Quarter: 2014Q2

REPORT INFORMATION
  Report Type: Spontaneous
  Country: US (occurrence: None)
  Receive Date: 20140627
  Receipt Date: 20140627
  Transmission Date: 20141212
  Serious: Yes (Other)
  Sender: FDA-Public Use
  Company Number: PHEH2013US025495

PATIENT
  Age: 65 Year
  Sex: Female

DRUGS (2)
  1. DIOVAN HCT (VALSARTAN, HYDROCHLOROTHIAZIDE) UNKNOWN [Suspect]
     Dosage: 1 DF (320MG  VALS/25MG HYDR)
  2. DIOVAN HCT (VALSARTAN, HYDROCHLOROTHIAZIDE) UNKNOWN [Suspect]
     Dosage: 1 DF (25MG/HYDR, 320MG VALS)

REACTIONS (6)
  - Blood pressure increased [None]
  - Hydrophobia [None]
  - Feeling abnormal [None]
  - Chest discomfort [None]
  - Vertigo [None]
  - Dizziness [None]
